FAERS Safety Report 5029253-6 (Version None)
Quarter: 2006Q2

REPORT INFORMATION
  Report Type: 
  Country: None (occurrence: None)
  Receive Date: 20060613
  Receipt Date: 20060605
  Transmission Date: 20061013
  Serious: Yes (Hospitalization)
  Sender: FDA-Public Use
  Company Number: HQWYE382017MAY06

PATIENT
  Age: 34 Year
  Sex: Female

DRUGS (12)
  1. RAPAMUNE (SIROLIMUS) [Suspect]
     Indication: PROPHYLAXIS AGAINST TRANSPLANT REJECTION
     Dosage: 3 MG 1X PER 1 DAY, ORAL
     Route: 048
     Dates: start: 20041025
  2. MYCOPHENOLATE MOFETIL [Suspect]
     Indication: PROPHYLAXIS AGAINST TRANSPLANT REJECTION
     Dosage: SEE IMAGE, ORAL
     Route: 048
     Dates: start: 20040428, end: 20060512
  3. MYCOPHENOLATE MOFETIL [Suspect]
     Indication: PROPHYLAXIS AGAINST TRANSPLANT REJECTION
     Dosage: SEE IMAGE, ORAL
     Route: 048
     Dates: start: 20060513
  4. TOPRAL (SULTOPRIDE) [Concomitant]
  5. ASPIRIN [Concomitant]
  6. LIPITOR [Concomitant]
  7. MULTIVITAMINS, PLAIN (MULTIVITAMINS, PLAIN) [Concomitant]
  8. GALENIC/IRON/VITAMINS NOS/FOLIC ACID/ (FOLIC ACID/IRON/VITAMINS NOS) [Concomitant]
  9. LOTENSIN [Concomitant]
  10. PROTONIX [Concomitant]
  11. LASIX [Concomitant]
  12. CORTICOSTEROID NOS (CORTICOSTEROID NOS) [Concomitant]

REACTIONS (29)
  - ABDOMINAL PAIN [None]
  - ACTIVATED PARTIAL THROMBOPLASTIN TIME PROLONGED [None]
  - ALANINE AMINOTRANSFERASE INCREASED [None]
  - ARTERIOVENOUS FISTULA SITE COMPLICATION [None]
  - BACTERIA URINE IDENTIFIED [None]
  - BACTERIAL PYELONEPHRITIS [None]
  - BLOOD PRESSURE INCREASED [None]
  - BODY TEMPERATURE INCREASED [None]
  - CARDIAC FAILURE CONGESTIVE [None]
  - COMPLICATIONS OF TRANSPLANTED KIDNEY [None]
  - DEEP VEIN THROMBOSIS [None]
  - DIARRHOEA [None]
  - ESCHERICHIA INFECTION [None]
  - GASTROINTESTINAL INFECTION [None]
  - HAEMOGLOBIN DECREASED [None]
  - HYPOTENSION [None]
  - ILL-DEFINED DISORDER [None]
  - OVARIAN CYST [None]
  - PERICARDIAL EFFUSION [None]
  - PLEURAL EFFUSION [None]
  - PNEUMONIA [None]
  - PYREXIA [None]
  - RENAL ABSCESS [None]
  - RENAL FAILURE ACUTE [None]
  - RENAL HAEMORRHAGE [None]
  - RENAL NECROSIS [None]
  - RESPIRATORY RATE INCREASED [None]
  - TACHYCARDIA [None]
  - VENOUS OCCLUSION [None]
